FAERS Safety Report 9716627 (Version 2)
Quarter: 2013Q4

REPORT INFORMATION
  Report Type: Spontaneous
  Country: US (occurrence: US)
  Receive Date: 20131127
  Receipt Date: 20131210
  Transmission Date: 20140711
  Serious: No
  Sender: FDA-Public Use
  Company Number: US-PFIZER INC-2013336556

PATIENT
  Sex: Female

DRUGS (1)
  1. VFEND [Suspect]
     Dosage: UNK

REACTIONS (3)
  - Dizziness [Unknown]
  - Asthenia [Unknown]
  - Balance disorder [Unknown]
